FAERS Safety Report 11993820 (Version 1)
Quarter: 2016Q1

REPORT INFORMATION
  Report Type: Spontaneous
  Country: US (occurrence: None)
  Receive Date: 20160202
  Receipt Date: 20160202
  Transmission Date: 20160526
  Serious: No
  Sender: FDA-Public Use
  Company Number: None

PATIENT
  Age: 54 Year
  Sex: Female

DRUGS (7)
  1. LINZESS [Concomitant]
     Active Substance: LINACLOTIDE
  2. GABAPENTIN. [Concomitant]
     Active Substance: GABAPENTIN
  3. METFORMIN [Concomitant]
     Active Substance: METFORMIN HYDROCHLORIDE
  4. AMANTADINE [Concomitant]
     Active Substance: AMANTADINE
  5. TRAZODON [Concomitant]
     Active Substance: TRAZODONE HYDROCHLORIDE
  6. ATORVASTATIN [Concomitant]
     Active Substance: ATORVASTATIN
  7. TETRABENAZINE 12.5MG OCEANSIDE [Suspect]
     Active Substance: TETRABENAZINE
     Route: 048
     Dates: start: 20151228, end: 20160201

REACTIONS (2)
  - Hyperhidrosis [None]
  - Anxiety [None]

NARRATIVE: CASE EVENT DATE: 20160201
